FAERS Safety Report 18904247 (Version 1)
Quarter: 2021Q1

REPORT INFORMATION
  Report Type: Spontaneous
  Country: US (occurrence: US)
  Receive Date: 20210217
  Receipt Date: 20210217
  Transmission Date: 20210420
  Serious: No
  Sender: FDA-Public Use
  Company Number: US-SA-2021SA045241

PATIENT
  Age: 78 Year
  Sex: Female

DRUGS (2)
  1. KEFLEX [Concomitant]
     Active Substance: CEPHALEXIN
     Indication: URINARY TRACT INFECTION
     Dosage: UNK
     Route: 065
  2. LANTUS SOLOSTAR [Suspect]
     Active Substance: INSULIN GLARGINE
     Indication: TYPE 2 DIABETES MELLITUS
     Dosage: 50 IU, QD
     Route: 065
     Dates: start: 20110205

REACTIONS (5)
  - Anal incontinence [Unknown]
  - Blood glucose increased [Unknown]
  - Urinary tract infection [Unknown]
  - Glycosylated haemoglobin increased [Unknown]
  - Urinary incontinence [Unknown]

NARRATIVE: CASE EVENT DATE: 20210205
